FAERS Safety Report 4385152-4 (Version None)
Quarter: 2004Q2

REPORT INFORMATION
  Report Type: 
  Country: None (occurrence: None)
  Receive Date: 20040624
  Receipt Date: 20040624
  Transmission Date: 20050107
  Serious: Yes (Other)
  Sender: FDA-Public Use
  Company Number: None

PATIENT
  Age: 57 Year
  Sex: Female
  Weight: 99.7913 kg

DRUGS (5)
  1. PRAVACHOL [Suspect]
     Indication: BLOOD CHOLESTEROL INCREASED
     Dates: end: 19980101
  2. PRAVACHOL [Suspect]
     Indication: HYPERTENSION
     Dates: end: 19980101
  3. GEMFIBROZIL [Suspect]
  4. ZOCOR [Suspect]
  5. BAYCOL [Suspect]

REACTIONS (1)
  - MYALGIA [None]
